FAERS Safety Report 5778719-X (Version None)
Quarter: 2008Q2

REPORT INFORMATION
  Report Type: 
  Country: None (occurrence: None)
  Receive Date: 20080618
  Receipt Date: 20080618
  Transmission Date: 20081010
  Serious: Yes (Other)
  Sender: FDA-Public Use
  Company Number: None

PATIENT
  Age: 51 Year
  Sex: Male
  Weight: 89.3586 kg

DRUGS (1)
  1. DIGITEK 0.25 MG. BERTEK [Suspect]
     Indication: CARDIAC FAILURE CONGESTIVE
     Dates: start: 19990610, end: 20080320

REACTIONS (6)
  - DECREASED APPETITE [None]
  - DIARRHOEA [None]
  - HALO VISION [None]
  - NAUSEA [None]
  - VISION BLURRED [None]
  - WEIGHT DECREASED [None]
